FAERS Safety Report 4845666-7 (Version None)
Quarter: 2005Q4

REPORT INFORMATION
  Report Type: 
  Country: None (occurrence: None)
  Receive Date: 20051206
  Receipt Date: 20051123
  Transmission Date: 20060501
  Serious: Yes (Hospitalization)
  Sender: FDA-Public Use
  Company Number: DE-BRACCO-BRO-009583

PATIENT
  Age: 29 Year
  Sex: Female

DRUGS (1)
  1. MULTIHANCE [Suspect]
     Route: 042
     Dates: start: 20051118, end: 20051118

REACTIONS (5)
  - GENERALISED ERYTHEMA [None]
  - LACRIMATION INCREASED [None]
  - NASAL CONGESTION [None]
  - PHARYNX DISCOMFORT [None]
  - RETCHING [None]
